FAERS Safety Report 24371117 (Version 1)
Quarter: 2024Q3

REPORT INFORMATION
  Report Type: Report from Study
  Country: US (occurrence: US)
  Receive Date: 20240927
  Receipt Date: 20240927
  Transmission Date: 20241017
  Serious: Yes (Death)
  Sender: JOHNSON AND JOHNSON
  Company Number: US-JNJFOC-20240960283

PATIENT
  Age: 58 Year
  Sex: Female

DRUGS (1)
  1. CILTACABTAGENE AUTOLEUCEL [Suspect]
     Active Substance: CILTACABTAGENE AUTOLEUCEL
     Indication: Plasma cell myeloma
     Dosage: 35.76*10^6 CAR-T CELLS
     Route: 042
     Dates: start: 2023

REACTIONS (4)
  - Immune effector cell-associated neurotoxicity syndrome [Fatal]
  - Bacterial infection [Fatal]
  - Fungal infection [Fatal]
  - Viral infection [Fatal]
